FAERS Safety Report 9639367 (Version 2)
Quarter: 2013Q4

REPORT INFORMATION
  Report Type: Report from Study
  Country: PH (occurrence: PH)
  Receive Date: 20131022
  Receipt Date: 20131105
  Transmission Date: 20140711
  Serious: Yes (Death)
  Sender: FDA-Public Use
  Company Number: PHHO2013PH013229

PATIENT
  Age: 72 Year
  Sex: Male
  Weight: 70 kg

DRUGS (10)
  1. BLINDED ENALAPRIL [Suspect]
     Indication: CARDIAC FAILURE CHRONIC
     Dosage: CODE NOR BROKEN
     Route: 048
     Dates: start: 20110504, end: 20130806
  2. BLINDED LCZ696 [Suspect]
     Indication: CARDIAC FAILURE CHRONIC
     Dosage: CODE NOR BROKEN
     Route: 048
     Dates: start: 20110504, end: 20130806
  3. BLINDED NO TREATMENT RECEIVED [Suspect]
     Indication: CARDIAC FAILURE CHRONIC
     Dosage: CODE NOR BROKEN
     Route: 048
     Dates: start: 20110504, end: 20130806
  4. CARVIBLOC [Suspect]
     Indication: CARDIAC FAILURE CHRONIC
     Dosage: 6.25 MG, BID HALF TABLET
     Route: 048
     Dates: start: 20120911, end: 20130806
  5. FUROSEMIDE [Suspect]
     Indication: OEDEMA
     Dosage: 20 MG, PRN ONE TABLET
     Route: 048
     Dates: start: 20120911, end: 20130806
  6. CLOPIDOGREL [Suspect]
     Indication: CARDIAC FAILURE CHRONIC
     Dosage: 75 MG, QD ONE TABLET
     Dates: start: 20110418, end: 20130806
  7. SIMVASTATIN [Suspect]
     Indication: DYSLIPIDAEMIA
     Dosage: 40 MG, QD ONE TABLET
     Dates: end: 20130806
  8. WARFARIN [Suspect]
     Indication: ATRIAL FIBRILLATION
     Dosage: 2.5 MG, QD ONE TABLET
     Dates: start: 20121219, end: 20130806
  9. BURINEX [Suspect]
     Indication: OEDEMA
     Dosage: 1 MG, QD ONE TABLET
     Dates: start: 20120911, end: 20130806
  10. LANOXIN [Suspect]
     Indication: CARDIAC FAILURE CHRONIC
     Dosage: 0.25 MG, UNK
     Dates: start: 20110909, end: 20130806

REACTIONS (2)
  - Cardiac failure congestive [Fatal]
  - Myocardial ischaemia [Fatal]
